FAERS Safety Report 4595784-6 (Version None)
Quarter: 2005Q1

REPORT INFORMATION
  Report Type: 
  Country: None (occurrence: None)
  Receive Date: 20050224
  Receipt Date: 20050216
  Transmission Date: 20050727
  Serious: Yes (Death)
  Sender: FDA-Public Use
  Company Number: 2005AP01170

PATIENT
  Age: 28 Year
  Sex: Male

DRUGS (2)
  1. DIPRIVAN [Suspect]
     Indication: CONVULSION PROPHYLAXIS
  2. PHENYTOIN [Concomitant]

REACTIONS (1)
  - PROPOFOL INFUSION SYNDROME [None]
